FAERS Safety Report 6932091-8 (Version None)
Quarter: 2010Q3

REPORT INFORMATION
  Report Type: 
  Country: None (occurrence: None)
  Receive Date: 20100819
  Receipt Date: 20100806
  Transmission Date: 20110219
  Serious: Yes (Other)
  Sender: FDA-Public Use
  Company Number: A0862619A

PATIENT
  Age: 37 Year
  Sex: Male

DRUGS (3)
  1. AVANDIA [Suspect]
     Route: 048
     Dates: start: 20040301
  2. CAPTOPRIL [Concomitant]
  3. GLYBURIDE [Concomitant]

REACTIONS (2)
  - HYPERTENSION [None]
  - LIVER INJURY [None]
